FAERS Safety Report 17868038 (Version 2)
Quarter: 2021Q4

REPORT INFORMATION
  Report Type: Report from Study
  Country: US (occurrence: US)
  Receive Date: 20200605
  Receipt Date: 20211128
  Transmission Date: 20220303
  Serious: Yes (Hospitalization)
  Sender: FDA-Public Use
  Company Number: US-BIOGEN-2020BI00836256

PATIENT
  Age: 49 Year
  Sex: Female

DRUGS (3)
  1. TECFIDERA [Suspect]
     Active Substance: DIMETHYL FUMARATE
     Indication: Multiple sclerosis
     Dosage: MAINTENANCE DOSE
     Route: 048
     Dates: start: 20180226, end: 20200430
  2. TECFIDERA [Suspect]
     Active Substance: DIMETHYL FUMARATE
     Route: 048
     Dates: start: 20180226, end: 2019
  3. TECFIDERA [Suspect]
     Active Substance: DIMETHYL FUMARATE
     Route: 048
     Dates: start: 202003, end: 20200430

REACTIONS (13)
  - Gastric bypass [Recovered/Resolved]
  - Pneumoperitoneum [Recovered/Resolved]
  - Postoperative abscess [Recovered/Resolved]
  - Procedural vomiting [Recovered/Resolved]
  - White blood cell count abnormal [Unknown]
  - Short-bowel syndrome [Recovered/Resolved]
  - Anxiety [Not Recovered/Not Resolved]
  - Central nervous system lesion [Not Recovered/Not Resolved]
  - Cerebral atrophy [Not Recovered/Not Resolved]
  - Memory impairment [Unknown]
  - Nausea [Recovered/Resolved]
  - Flushing [Recovered/Resolved]
  - Rash [Recovered/Resolved]

NARRATIVE: CASE EVENT DATE: 20191216
